FAERS Safety Report 11229219 (Version 2)
Quarter: 2015Q3

REPORT INFORMATION
  Report Type: Report from Study
  Country: DE (occurrence: DE)
  Receive Date: 20150630
  Receipt Date: 20150812
  Transmission Date: 20151125
  Serious: Yes (Hospitalization)
  Sender: FDA-Public Use
  Company Number: PHHO2015DE007575

PATIENT
  Age: 62 Year
  Sex: Male
  Weight: 60 kg

DRUGS (8)
  1. WELLVONE [Concomitant]
     Active Substance: ATOVAQUONE
     Indication: ANTIFUNGAL PROPHYLAXIS
     Dosage: 750 MG, BID
     Route: 048
     Dates: start: 20130924
  2. AZITHROMYCIN [Concomitant]
     Active Substance: AZITHROMYCIN ANHYDROUS
     Indication: PROPHYLAXIS
     Dosage: 250 MG, QD
     Route: 048
     Dates: start: 20140509, end: 20150618
  3. CERTICAN [Suspect]
     Active Substance: EVEROLIMUS
     Indication: GRAFT VERSUS HOST DISEASE
     Dosage: 0.25 MG, QOD
     Route: 048
     Dates: start: 20140512, end: 20150423
  4. PREDNISONE. [Suspect]
     Active Substance: PREDNISONE
     Indication: GRAFT VERSUS HOST DISEASE
     Dosage: 2.5 MG, QD
     Route: 048
     Dates: start: 20140509, end: 20150423
  5. NOXAFIL [Concomitant]
     Active Substance: POSACONAZOLE
     Indication: ANTIBIOTIC PROPHYLAXIS
     Dosage: 300 MG, QD
     Route: 048
     Dates: start: 20140509
  6. NOXAFIL [Concomitant]
     Active Substance: POSACONAZOLE
     Dosage: UNK
     Route: 048
  7. CEFUROXIME. [Concomitant]
     Active Substance: CEFUROXIME
     Indication: ANTIBIOTIC PROPHYLAXIS
     Dosage: 500 MG, BID
     Route: 065
     Dates: start: 20150603, end: 20150618
  8. SPIRIVA [Concomitant]
     Active Substance: TIOTROPIUM BROMIDE MONOHYDRATE
     Indication: RESTRICTIVE PULMONARY DISEASE
     Dosage: 1 HUB (JUHAL)
     Route: 055

REACTIONS (2)
  - Infection [Recovering/Resolving]
  - Polyserositis [Recovering/Resolving]

NARRATIVE: CASE EVENT DATE: 20150427
